FAERS Safety Report 9231183 (Version 1)
Quarter: 2013Q2

REPORT INFORMATION
  Report Type: Spontaneous
  Country: AU (occurrence: AU)
  Receive Date: 20130415
  Receipt Date: 20130415
  Transmission Date: 20140414
  Serious: Yes (Other)
  Sender: FDA-Public Use
  Company Number: AU-ROCHE-1212435

PATIENT
  Sex: 0

DRUGS (2)
  1. AVASTIN [Suspect]
     Indication: COLORECTAL CANCER METASTATIC
     Route: 065
  2. CETUXIMAB [Concomitant]
     Indication: COLORECTAL CANCER METASTATIC

REACTIONS (1)
  - Colorectal cancer metastatic [Unknown]
